FAERS Safety Report 19100014 (Version 3)
Quarter: 2021Q2

REPORT INFORMATION
  Report Type: Spontaneous
  Country: US (occurrence: US)
  Receive Date: 20210407
  Receipt Date: 20210429
  Transmission Date: 20210717
  Serious: Yes (Hospitalization)
  Sender: FDA-Public Use
  Company Number: US-ROCHE-2805726

PATIENT
  Sex: Female

DRUGS (7)
  1. ASPIRIN. [Concomitant]
     Active Substance: ASPIRIN
  2. ALBUTEROL. [Concomitant]
     Active Substance: ALBUTEROL
  3. BISOPROLOL [Concomitant]
     Active Substance: BISOPROLOL
  4. ESBRIET [Suspect]
     Active Substance: PIRFENIDONE
     Indication: IDIOPATHIC PULMONARY FIBROSIS
     Route: 048
     Dates: start: 20180119
  5. TRIAMTERENE AND HYDROCHLOROTHIAZIDE [Concomitant]
     Active Substance: HYDROCHLOROTHIAZIDE\TRIAMTERENE
  6. PRESERVISION [Concomitant]
     Active Substance: MINERALS\VITAMINS
  7. ZYRTEC (UNITED STATES) [Concomitant]

REACTIONS (1)
  - Pain [Recovered/Resolved]
